FAERS Safety Report 8588942-7 (Version None)
Quarter: 2012Q3

REPORT INFORMATION
  Report Type: 
  Country: None (occurrence: None)
  Receive Date: 20120813
  Receipt Date: 20120804
  Transmission Date: 20120928
  Serious: Yes (Hospitalization, Disabling)
  Sender: FDA-Public Use
  Company Number: GB-SANOFI-AVENTIS-2012SA056043

PATIENT
  Sex: Male

DRUGS (1)
  1. ALFUZOSIN HYDROCHLORIDE [Suspect]
     Route: 065
     Dates: start: 20110801

REACTIONS (13)
  - DIZZINESS [None]
  - OESOPHAGEAL MOTILITY TEST [None]
  - HEART RATE DECREASED [None]
  - HYPERTENSION [None]
  - PALPITATIONS [None]
  - CARDIOVASCULAR INSUFFICIENCY [None]
  - CHEST PAIN [None]
  - LETHARGY [None]
  - HYPOTENSION [None]
  - HIATUS HERNIA [None]
  - ERECTILE DYSFUNCTION [None]
  - DYSURIA [None]
  - ATRIOVENTRICULAR BLOCK FIRST DEGREE [None]
